FAERS Safety Report 23191494 (Version 1)
Quarter: 2023Q4

REPORT INFORMATION
  Report Type: Spontaneous
  Country: US (occurrence: None)
  Receive Date: 20231115
  Receipt Date: 20231115
  Transmission Date: 20240110
  Serious: No
  Sender: FDA-Public Use
  Company Number: None

PATIENT
  Age: 65 Year
  Sex: Male

DRUGS (1)
  1. AUSTEDO [Suspect]
     Active Substance: DEUTETRABENAZINE
     Indication: Dyskinesia
     Dosage: FREQUENCY : TWICE A DAY;?
     Route: 048
     Dates: start: 20231013, end: 20231101

REACTIONS (7)
  - Abdominal discomfort [None]
  - Abdominal pain upper [None]
  - Headache [None]
  - Decreased appetite [None]
  - Depression [None]
  - Anxiety [None]
  - Therapy cessation [None]

NARRATIVE: CASE EVENT DATE: 20231101
